FAERS Safety Report 5573928-7 (Version None)
Quarter: 2007Q4

REPORT INFORMATION
  Report Type: 
  Country: None (occurrence: None)
  Receive Date: 20071220
  Receipt Date: 20071205
  Transmission Date: 20080405
  Serious: Yes (Hospitalization)
  Sender: FDA-Public Use
  Company Number: 021670

PATIENT
  Age: 31 Year
  Sex: Male

DRUGS (7)
  1. AMIODARONE HCL [Suspect]
     Indication: ATRIAL FIBRILLATION
     Dosage: 600 MG, DAYS 2 TO 4, ORAL; 200 MG, ON DISCHARGE FROM HOSP., ORAL
     Route: 048
  2. AMIODARONE HCL [Suspect]
     Indication: ATRIAL FLUTTER
     Dosage: 600 MG, DAYS 2 TO 4, ORAL; 200 MG, ON DISCHARGE FROM HOSP., ORAL
     Route: 048
  3. DIGOXIN [Suspect]
     Dosage: ORAL
     Route: 048
  4. FUROSEMIDE [Concomitant]
  5. BENAZEPRIL HCL [Concomitant]
  6. ACETYLSALICYLIC ACID SRT [Concomitant]
  7. FLUTICASONE PROPIONATE [Concomitant]

REACTIONS (11)
  - ALANINE AMINOTRANSFERASE INCREASED [None]
  - ASPARTATE AMINOTRANSFERASE INCREASED [None]
  - ATRIAL FIBRILLATION [None]
  - ATRIAL FLUTTER [None]
  - BILIRUBIN CONJUGATED INCREASED [None]
  - BLOOD BILIRUBIN INCREASED [None]
  - BLOOD CREATINE DECREASED [None]
  - BLOOD UREA INCREASED [None]
  - DRUG INTERACTION [None]
  - DRUG LEVEL FLUCTUATING [None]
  - RENAL FUNCTION TEST ABNORMAL [None]
